FAERS Safety Report 9614605 (Version 3)
Quarter: 2016Q3

REPORT INFORMATION
  Report Type: Spontaneous
  Country: BR (occurrence: BR)
  Receive Date: 20131011
  Receipt Date: 20160728
  Transmission Date: 20161109
  Serious: Yes (Other)
  Sender: FDA-Public Use
  Company Number: BR-AMGEN-BRASP2013070992

PATIENT
  Age: 59 Year
  Sex: Female
  Weight: 84 kg

DRUGS (9)
  1. ENBREL [Suspect]
     Active Substance: ETANERCEPT
     Indication: PSORIATIC ARTHROPATHY
     Dosage: 50 MG, ONCE WEEKLY
     Route: 058
     Dates: start: 201305, end: 201310
  2. LOSARTAN POTASSIUM. [Concomitant]
     Active Substance: LOSARTAN POTASSIUM
     Dosage: STRENGTH 25, TWICE DAILY
  3. ALDACTONE [Concomitant]
     Active Substance: SPIRONOLACTONE
     Dosage: TWICE DAILY
  4. CARVEDILOL. [Concomitant]
     Active Substance: CARVEDILOL
     Dosage: UNK
  5. LASIX [Concomitant]
     Active Substance: FUROSEMIDE
     Dosage: EVERY 2 DAYS
  6. PROFLAM [Concomitant]
     Dosage: UNK
  7. DIVELOL [Concomitant]
     Dosage: STRENGTH 6.25, TWICE DAILY
  8. BROMAZEPAM [Concomitant]
     Active Substance: BROMAZEPAM
     Dosage: STRENGTH 6 MG
  9. DIGOXIN. [Concomitant]
     Active Substance: DIGOXIN
     Dosage: STRENGTH 0.25 MG, ONCE DAILY

REACTIONS (15)
  - Formication [Not Recovered/Not Resolved]
  - Bronchospasm [Unknown]
  - Pain [Unknown]
  - Bronchitis [Unknown]
  - Fatigue [Unknown]
  - Catarrh [Unknown]
  - Pain in extremity [Not Recovered/Not Resolved]
  - Suffocation feeling [Unknown]
  - Anxiety [Unknown]
  - Body temperature abnormal [Unknown]
  - Balance disorder [Unknown]
  - Cough [Unknown]
  - Oedema peripheral [Unknown]
  - Pneumonia [Unknown]
  - Influenza [Unknown]

NARRATIVE: CASE EVENT DATE: 2013
